FAERS Safety Report 13394168 (Version 2)
Quarter: 2017Q2

REPORT INFORMATION
  Report Type: Spontaneous
  Country: AU (occurrence: AU)
  Receive Date: 20170401
  Receipt Date: 20170509
  Transmission Date: 20170830
  Serious: Yes (Hospitalization)
  Sender: FDA-Public Use
  Company Number: AU-ALEXION-A201703176

PATIENT
  Age: 75 Year
  Sex: Male

DRUGS (2)
  1. SOLIRIS [Suspect]
     Active Substance: ECULIZUMAB
     Dosage: 1200 MG, UNK
     Route: 042
  2. SOLIRIS [Suspect]
     Active Substance: ECULIZUMAB
     Indication: HAEMOLYTIC URAEMIC SYNDROME
     Dosage: UNK MG, UNK
     Route: 042
     Dates: start: 201504

REACTIONS (4)
  - Underdose [Unknown]
  - Prostatic disorder [Unknown]
  - Localised oedema [Unknown]
  - Device breakage [Unknown]

NARRATIVE: CASE EVENT DATE: 20170323
